FAERS Safety Report 8395784-4 (Version None)
Quarter: 2012Q2

REPORT INFORMATION
  Report Type: 
  Country: None (occurrence: None)
  Receive Date: 20120530
  Receipt Date: 20120525
  Transmission Date: 20120825
  Serious: Yes (Hospitalization)
  Sender: FDA-Public Use
  Company Number: IT-TEVA-340186ISR

PATIENT
  Sex: Male

DRUGS (2)
  1. ONGLYZA [Suspect]
     Indication: TYPE 2 DIABETES MELLITUS
     Dosage: 5 MILLIGRAM;
     Route: 048
     Dates: start: 20120227, end: 20120424
  2. METFORMIN HCL [Suspect]
     Indication: TYPE 2 DIABETES MELLITUS
     Dosage: 2200 MILLIGRAM;
     Route: 048
     Dates: start: 20111010, end: 20120424

REACTIONS (2)
  - ABDOMINAL PAIN [None]
  - CHOLECYSTITIS [None]
